FAERS Safety Report 11093382 (Version 3)
Quarter: 2015Q3

REPORT INFORMATION
  Report Type: Spontaneous
  Country: US (occurrence: US)
  Receive Date: 20150506
  Receipt Date: 20150722
  Transmission Date: 20151125
  Serious: Yes (Hospitalization)
  Sender: FDA-Public Use
  Company Number: US-BAYER-2015-189884

PATIENT
  Age: 33 Year
  Sex: Female
  Weight: 128.8 kg

DRUGS (16)
  1. OCELLA [Suspect]
     Active Substance: DROSPIRENONE\ETHINYL ESTRADIOL
     Indication: PREMENSTRUAL DYSPHORIC DISORDER
     Dosage: UNK
     Dates: start: 200908
  2. METOPROLOL [Concomitant]
     Active Substance: METOPROLOL
     Dosage: UNK
     Dates: start: 2010
  3. ANCEF [Concomitant]
     Active Substance: CEFAZOLIN SODIUM
     Dosage: 2 G, UNK
     Route: 042
  4. OCELLA [Suspect]
     Active Substance: DROSPIRENONE\ETHINYL ESTRADIOL
     Indication: PREMENSTRUAL DYSPHORIC DISORDER
     Dosage: UNK
     Dates: start: 200912
  5. PROGESTERONE. [Concomitant]
     Active Substance: PROGESTERONE
     Dosage: 50MG/CC, ? CC [TIMES] 2 D(INTERPRETED AS DAYS), THEN 1CC/D, UNK
     Route: 030
  6. OCELLA [Suspect]
     Active Substance: DROSPIRENONE\ETHINYL ESTRADIOL
     Indication: PREMENSTRUAL DYSPHORIC DISORDER
     Dosage: UNK
     Dates: start: 201004, end: 20100512
  7. DIOVAN [Concomitant]
     Active Substance: VALSARTAN
     Indication: HYPERTENSION
     Dosage: UNK
     Dates: start: 2008, end: 2014
  8. DOXYCYCLINE. [Concomitant]
     Active Substance: DOXYCYCLINE
     Dosage: 100 MG, BID
     Route: 048
  9. VERSED [Concomitant]
     Active Substance: MIDAZOLAM HYDROCHLORIDE
     Dosage: 5 MG, UNK
     Route: 042
  10. ZOFRAN [Concomitant]
     Active Substance: ONDANSETRON HYDROCHLORIDE
     Dosage: 4 MG, UNK
     Route: 042
  11. FENTANYL. [Concomitant]
     Active Substance: FENTANYL
     Dosage: 500 ?G, UNK
     Route: 042
  12. PROGESTERONE. [Concomitant]
     Active Substance: PROGESTERONE
     Dosage: 25 MG, UNK
     Route: 030
  13. METHYLPREDNISOLONE. [Concomitant]
     Active Substance: METHYLPREDNISOLONE
     Dosage: 4 MG, TIMES / DAY; START 03-APR-2010
     Route: 048
  14. LUPRON [Concomitant]
     Active Substance: LEUPROLIDE ACETATE
     Indication: INFERTILITY FEMALE
     Dosage: UNK UNK, QD
     Dates: start: 201004, end: 20110511
  15. LUPRON [Concomitant]
     Active Substance: LEUPROLIDE ACETATE
     Indication: INFERTILITY FEMALE
  16. DECADRON [Concomitant]
     Active Substance: DEXAMETHASONE
     Dosage: 8 MG, UNK
     Route: 042

REACTIONS (22)
  - General physical health deterioration [Not Recovered/Not Resolved]
  - Lymphoedema [None]
  - Chest pain [Not Recovered/Not Resolved]
  - Nausea [None]
  - Asthenia [Not Recovered/Not Resolved]
  - Palpitations [None]
  - Bronchitis viral [None]
  - Injury [Not Recovered/Not Resolved]
  - Hypoaesthesia [None]
  - Dizziness [None]
  - Depression [None]
  - Cough [Not Recovered/Not Resolved]
  - Pulmonary embolism [Not Recovered/Not Resolved]
  - Cardiomegaly [None]
  - Post-traumatic stress disorder [None]
  - Dyspnoea [Not Recovered/Not Resolved]
  - Peripheral swelling [None]
  - Chest discomfort [Not Recovered/Not Resolved]
  - Pain in extremity [None]
  - Deep vein thrombosis [None]
  - Pleurisy [None]
  - Back pain [Not Recovered/Not Resolved]

NARRATIVE: CASE EVENT DATE: 20100505
